FAERS Safety Report 22628237 (Version 1)
Quarter: 2023Q2

REPORT INFORMATION
  Report Type: Spontaneous
  Country: US (occurrence: None)
  Receive Date: 20230621
  Receipt Date: 20230621
  Transmission Date: 20230721
  Serious: Yes (Life-Threatening, Hospitalization, Other)
  Sender: FDA-Public Use
  Company Number: None

PATIENT
  Age: 41 Year
  Sex: Female
  Weight: 75.15 kg

DRUGS (1)
  1. PACLITAXEL [Suspect]
     Active Substance: PACLITAXEL
     Indication: Invasive lobular breast carcinoma
     Dates: start: 20221129, end: 20221213

REACTIONS (13)
  - Urticaria [None]
  - Syncope [None]
  - Lip swelling [None]
  - Malaise [None]
  - Anxiety [None]
  - Pulse absent [None]
  - Loss of consciousness [None]
  - Skin discolouration [None]
  - Dyskinesia [None]
  - Cardiac arrest [None]
  - Anaphylactic reaction [None]
  - Drug hypersensitivity [None]
  - Infusion related hypersensitivity reaction [None]

NARRATIVE: CASE EVENT DATE: 20221213
